FAERS Safety Report 21331617 (Version 2)
Quarter: 2022Q4

REPORT INFORMATION
  Report Type: Spontaneous
  Country: US (occurrence: US)
  Receive Date: 20220914
  Receipt Date: 20221020
  Transmission Date: 20230112
  Serious: No
  Sender: FDA-Public Use
  Company Number: US-GSKCCFUS-Case-01487472_AE-84851

PATIENT
  Sex: Female
  Weight: 72.562 kg

DRUGS (1)
  1. TRELEGY ELLIPTA [Suspect]
     Active Substance: FLUTICASONE FUROATE\UMECLIDINIUM BROMIDE\VILANTEROL TRIFENATATE
     Indication: Product used for unknown indication
     Dosage: UNK, 100/62.5/25
     Dates: start: 202111

REACTIONS (3)
  - Wrong technique in device usage process [Recovered/Resolved]
  - Product storage error [Recovered/Resolved]
  - Product dose omission issue [Recovered/Resolved]
